FAERS Safety Report 13055042 (Version 1)
Quarter: 2016Q4

REPORT INFORMATION
  Report Type: Spontaneous
  Country: CN (occurrence: CN)
  Receive Date: 20161222
  Receipt Date: 20161222
  Transmission Date: 20170207
  Serious: Yes (Hospitalization, Other)
  Sender: FDA-Public Use
  Company Number: CN-GLAXOSMITHKLINE-CN2016GSK187547

PATIENT
  Age: 32 Year
  Sex: Female
  Weight: 30 kg

DRUGS (4)
  1. LAMICTAL [Suspect]
     Active Substance: LAMOTRIGINE
     Indication: EPILEPSY
     Dosage: 50 MG, 1D (ONE TABLET PER DAY)
     Route: 048
  2. LAMICTAL [Suspect]
     Active Substance: LAMOTRIGINE
     Dosage: 50 MG, ONE AND A HALF TABLET, BID
     Route: 048
  3. VALPROATE SODIUM. [Suspect]
     Active Substance: VALPROATE SODIUM
     Indication: EPILEPSY
     Route: 048
  4. LAMICTAL [Suspect]
     Active Substance: LAMOTRIGINE
     Dosage: 50 MG, ONE AND A HALF TABLET, BID
     Route: 048

REACTIONS (6)
  - Wrong technique in product usage process [Unknown]
  - Generalised tonic-clonic seizure [Recovering/Resolving]
  - Drug ineffective [Unknown]
  - Cerebrovascular accident [Recovering/Resolving]
  - Cerebral infarction [Recovering/Resolving]
  - Suspected counterfeit product [Unknown]

NARRATIVE: CASE EVENT DATE: 20161013
